FAERS Safety Report 15936777 (Version 1)
Quarter: 2019Q1

REPORT INFORMATION
  Report Type: Spontaneous
  Country: US (occurrence: US)
  Receive Date: 20190207
  Receipt Date: 20190207
  Transmission Date: 20190417
  Serious: Yes (Other)
  Sender: FDA-Public Use
  Company Number: None

PATIENT
  Age: 34 Year
  Sex: Female
  Weight: 97.98 kg

DRUGS (1)
  1. AIMOVIG [Suspect]
     Active Substance: ERENUMAB-AOOE
     Indication: MIGRAINE
     Route: 058

REACTIONS (8)
  - Myalgia [None]
  - Contusion [None]
  - Headache [None]
  - Injection site pain [None]
  - Injection site erythema [None]
  - Arthralgia [None]
  - Injection site swelling [None]
  - Fatigue [None]

NARRATIVE: CASE EVENT DATE: 20190123
